FAERS Safety Report 9676202 (Version 1)
Quarter: 2013Q4

REPORT INFORMATION
  Report Type: Spontaneous
  Country: US (occurrence: None)
  Receive Date: 20131105
  Receipt Date: 20131105
  Transmission Date: 20140711
  Serious: Yes (Hospitalization)
  Sender: FDA-Public Use
  Company Number: 2013AP009438

PATIENT
  Age: 26 Year
  Sex: Male

DRUGS (4)
  1. CITALOPRAM HYDROBROMIDE [Suspect]
     Indication: DEPRESSION
  2. WARFARIN [Concomitant]
  3. MULTIVITAMINS [Concomitant]
  4. TRAZODONE [Concomitant]
     Route: 048

REACTIONS (4)
  - Tardive dyskinesia [None]
  - Akathisia [None]
  - Neck pain [None]
  - Suicidal ideation [None]
